FAERS Safety Report 16408577 (Version 2)
Quarter: 2019Q2

REPORT INFORMATION
  Report Type: Spontaneous
  Country: IT (occurrence: IT)
  Receive Date: 20190610
  Receipt Date: 20190612
  Transmission Date: 20190711
  Serious: Yes (Hospitalization)
  Sender: FDA-Public Use
  Company Number: IT-SUN PHARMACEUTICAL INDUSTRIES LTD-2019RR-209853

PATIENT
  Age: 79 Year
  Sex: Female

DRUGS (1)
  1. CITALOPRAM [Suspect]
     Active Substance: CITALOPRAM HYDROBROMIDE
     Indication: PRODUCT ADMINISTRATION ERROR
     Dosage: 15 MILLIGRAM, IN TOTAL
     Route: 048
     Dates: start: 20190505, end: 20190505

REACTIONS (4)
  - Vomiting [Recovering/Resolving]
  - Tremor [Recovering/Resolving]
  - Medication error [Recovering/Resolving]
  - Nausea [Recovering/Resolving]

NARRATIVE: CASE EVENT DATE: 20190505
